FAERS Safety Report 9358087 (Version 1)
Quarter: 2013Q2

REPORT INFORMATION
  Report Type: Spontaneous
  Country: US (occurrence: US)
  Receive Date: 20130620
  Receipt Date: 20130620
  Transmission Date: 20140414
  Serious: No
  Sender: FDA-Public Use
  Company Number: US-PFIZER INC-2013184022

PATIENT
  Sex: Female

DRUGS (2)
  1. EFFEXOR XR [Suspect]
     Indication: ANXIETY
     Dosage: 35 MG, UNK
     Route: 048
     Dates: start: 2012
  2. EFFEXOR XR [Suspect]
     Dosage: 70 MG, UNK
     Route: 048

REACTIONS (2)
  - Drug ineffective [Unknown]
  - Weight increased [Unknown]
